FAERS Safety Report 15886286 (Version 1)
Quarter: 2019Q1

REPORT INFORMATION
  Report Type: Spontaneous
  Country: US (occurrence: US)
  Receive Date: 20190129
  Receipt Date: 20190129
  Transmission Date: 20190417
  Serious: No
  Sender: FDA-Public Use
  Company Number: US-US WORLDMEDS, LLC-USW201809-001410

PATIENT
  Sex: Female
  Weight: 60.78 kg

DRUGS (6)
  1. CORGARD [Suspect]
     Active Substance: NADOLOL
     Dosage: 3 PILLS OF 40 MG IN THE EVENING
  2. XANAX [Concomitant]
     Active Substance: ALPRAZOLAM
  3. SYNTHROID [Concomitant]
     Active Substance: LEVOTHYROXINE SODIUM
  4. CORGARD [Suspect]
     Active Substance: NADOLOL
     Dosage: (3 PILLS OF 20 MG) IN THE MORNING
  5. CORGARD [Suspect]
     Active Substance: NADOLOL
     Indication: MENTAL DISORDER
  6. ZOCOR [Concomitant]
     Active Substance: SIMVASTATIN

REACTIONS (1)
  - Extrasystoles [Recovered/Resolved]

NARRATIVE: CASE EVENT DATE: 2018
